FAERS Safety Report 6270412-2 (Version None)
Quarter: 2009Q3

REPORT INFORMATION
  Report Type: 
  Country: None (occurrence: None)
  Receive Date: 20090716
  Receipt Date: 20090707
  Transmission Date: 20100115
  Serious: Yes (Other)
  Sender: FDA-Public Use
  Company Number: GB-ASTRAZENECA-2009SE04156

PATIENT
  Age: 63 Year
  Sex: Female

DRUGS (5)
  1. ANASTROZOLE [Suspect]
     Route: 048
     Dates: start: 20040524, end: 20081007
  2. AMLODIPINE [Concomitant]
     Route: 065
  3. BENDROFLUMETHIAZIDE [Concomitant]
     Route: 065
  4. ACETAMINOPHEN W/ CODEINE [Concomitant]
  5. VALSARTAN [Concomitant]
     Route: 065

REACTIONS (2)
  - ALVEOLITIS ALLERGIC [None]
  - DYSPNOEA [None]
